FAERS Safety Report 18609255 (Version 1)
Quarter: 2020Q4

REPORT INFORMATION
  Report Type: Spontaneous
  Country: GB (occurrence: GB)
  Receive Date: 20201214
  Receipt Date: 20201214
  Transmission Date: 20210114
  Serious: Yes (Life-Threatening, Other)
  Sender: FDA-Public Use
  Company Number: GB-TEVA-2020-GB-1851926

PATIENT
  Age: 54 Year
  Sex: Female
  Weight: 65.95 kg

DRUGS (48)
  1. CALCIUM FOLINATE [Concomitant]
     Active Substance: LEUCOVORIN CALCIUM
     Dosage: IV, 30MG, TWICE DAILY, (DAILY DOSE 60MG)
     Dates: start: 20200716, end: 20200717
  2. AMIKAXIN [Concomitant]
     Dosage: IV, 800MG, ONCE DAILY (DAILY DOSE 800MG)
     Dates: start: 20200708, end: 20200708
  3. METOCLOPRAMIDE. [Concomitant]
     Active Substance: METOCLOPRAMIDE
     Dosage: ORAL, 10MG, THREE TIMES DAILY (DAILY DOSE 30MG), PRESCRIBED FOR ANTIEMETIC
     Dates: start: 20200629, end: 20200707
  4. VITAMIN E [Concomitant]
     Active Substance: .ALPHA.-TOCOPHEROL
     Indication: PROPHYLAXIS
     Dosage: ORAL, 10MG, THREE TIMES DAILY (DAILY DOSE 30MG)
     Dates: start: 20200630, end: 20200730
  5. LEVOTHYROXINE. [Concomitant]
     Active Substance: LEVOTHYROXINE
     Indication: THYROIDECTOMY
     Dosage: ORAL, 100MCG, ONCE DAILY (DAILY DOSE 100MCG)
     Dates: start: 20200629, end: 20200911
  6. ALLOPURINOL. [Concomitant]
     Active Substance: ALLOPURINOL
     Indication: PROPHYLAXIS
     Dosage: ORAL, 300MG, ONCE DAILY (DAILY DOSE 300MG)
     Dates: start: 20200629, end: 20200706
  7. COTRIMOXAZOLE [Concomitant]
     Active Substance: SULFAMETHOXAZOLE\TRIMETHOPRIM
     Indication: PROPHYLAXIS
     Dosage: ORAL, 960MG, TWICE DAILY (DAILY DOSE 1920MG)
     Dates: start: 20200629, end: 20200804
  8. URSODEOXYCHOLIC ACID [Concomitant]
     Active Substance: URSODIOL
     Indication: PRIMARY BILIARY CHOLANGITIS
     Dosage: ORAL, 500MG, TWICE DAILY (DAILY DOSE 1G)
     Dates: start: 20200630, end: 20200901
  9. FOLIC ACID. [Concomitant]
     Active Substance: FOLIC ACID
     Dosage: ORAL, 5MG, ONCE DAILY (DAILY DOSE 5MG), PRESCRIBED FOR SUPPORTIVE
     Dates: start: 20200629, end: 20200911
  10. OMEPRAZOLE. [Concomitant]
     Active Substance: OMEPRAZOLE
     Dosage: ORAL, 20MG, ONCE DAILY (DAILY DOSE 20MG), PRESCRIBED FOR SUPPORTIVE
     Dates: start: 20200629, end: 20200730
  11. LOPERAMIDE [Concomitant]
     Active Substance: LOPERAMIDE
     Indication: DIARRHOEA
     Dosage: ORAL, 2MG, THREE TIMES DAILY (DAILY DOSE 6MG)
     Dates: start: 20200707, end: 20200710
  12. SIROLIMUS. [Concomitant]
     Active Substance: SIROLIMUS
     Indication: PROPHYLAXIS
     Dosage: IV, 500MCG, ONCE DAILY, (DAILY DOSE 500MCG)
     Dates: start: 20200709, end: 20200830
  13. CALCIUM FOLINATE [Concomitant]
     Active Substance: LEUCOVORIN CALCIUM
     Dosage: IV, 30MG, TWICE DAILY, (DAILY DOSE 60MG)
     Dates: start: 20200722, end: 20200723
  14. ACICLOVIR [Concomitant]
     Active Substance: ACYCLOVIR
     Indication: PROPHYLAXIS
     Dosage: ORAL, 400MG, TWICE DAILY (DAILY DOSE 800MG)
     Dates: start: 20200629, end: 20200807
  15. LETERMOVIR [Concomitant]
     Active Substance: LETERMOVIR
     Indication: PROPHYLAXIS
     Dosage: ORAL, 480MG, ONCE DAILY (DAILY DOSE 480MG)
     Dates: start: 20200707, end: 20200812
  16. VITAMIN K [Concomitant]
     Active Substance: PHYTONADIONE
     Indication: COAGULOPATHY
     Dosage: IV, 10MG, ONCE DAILY (DAILY DOSE 10MG)
     Dates: start: 20200705, end: 20200705
  17. THIOTEPA. [Concomitant]
     Active Substance: THIOTEPA
     Dosage: IV, 330MG, ONCE (DAILY DOSE 330MG), PRESCRIBED FOR CONDITIONING
     Dates: start: 20200701, end: 20200701
  18. CIPROFLOXACIN. [Concomitant]
     Active Substance: CIPROFLOXACIN
     Indication: INFECTION PROPHYLAXIS
     Dosage: ORAL, 500MG, TWICE DAILY (DAILY DOSE 1G)
     Dates: start: 20200630, end: 20200826
  19. PARACETAMOL [Concomitant]
     Active Substance: ACETAMINOPHEN
     Indication: PYREXIA
  20. CHLORPHENAMINE [Concomitant]
     Active Substance: CHLORPHENIRAMINE MALEATE
     Indication: HYPERSENSITIVITY
     Dosage: IV, 10MG, AS REQUIRED (DAILY DOSE 0-20MG)
     Dates: start: 20200629, end: 20200821
  21. ONDANSETRON [Concomitant]
     Active Substance: ONDANSETRON
     Indication: ANTIEMETIC SUPPORTIVE CARE
     Dosage: IV, 8MG, TWICE DAILY, (DAILY DOSE 16MG)
     Dates: start: 20200630, end: 20200715
  22. MEROPENEM. [Concomitant]
     Active Substance: MEROPENEM
     Indication: SEPSIS
     Dosage: IV, 1G, THREE TIMES DAILY, (DAILY DOSE 3G)
     Dates: start: 20200705, end: 20200710
  23. GLYCOPHOS [Concomitant]
     Active Substance: SODIUM GLYCEROPHOSPHATE ANHYDROUS
     Dosage: IV, 20MMOL, ONCE DAILY (DAILY DOSE 20MMOL)
     Dates: start: 20200706, end: 20200706
  24. METHYLPREDNISOLONE. [Concomitant]
     Active Substance: METHYLPREDNISOLONE
     Indication: CHEMOTHERAPY SIDE EFFECT PROPHYLAXIS
     Dosage: IV, 125MG, ONCE DAILY (125MG DAILY DOSE)
     Dates: start: 20200708, end: 20200708
  25. DIAZEPAM. [Concomitant]
     Active Substance: DIAZEPAM
     Dosage: ORAL, 2MG, ONCE DAILY, (DAILY DOSE 2MG), PRESCRIBED FOR PRE-PROCEDURE
     Dates: start: 20200709, end: 20200709
  26. AMIKAXIN [Concomitant]
     Indication: SEPSIS
     Dosage: IV, 400MG, TWICE DAILY (DAILY DOSE 900MG)
     Dates: start: 20200705, end: 20200705
  27. AMIKAXIN [Concomitant]
     Dosage: IV, 400MG, ONCE DAILY (DAILY DOSE 400MG)
     Dates: start: 20200706, end: 20200707
  28. LAXIDO [Concomitant]
     Active Substance: POLYETHYLENE GLYCOL 3350\POTASSIUM CHLORIDE\SODIUM BICARBONATE\SODIUM CHLORIDE
     Indication: CONSTIPATION
     Dosage: ORAL, 1 SACHET, ONCE DAILY (1 SACHET)
     Dates: start: 20200702, end: 20200703
  29. ISAVUCONAZOLE [Concomitant]
     Active Substance: ISAVUCONAZOLE
     Indication: PROPHYLAXIS
     Dosage: ORAL, 200MG, THREE TIMES DAILY, (DAILY DOSE 600MG)
     Dates: start: 20200710, end: 20200730
  30. CALCIUM FOLINATE [Concomitant]
     Active Substance: LEUCOVORIN CALCIUM
     Dosage: IV, 30MG, TWICE DAILY, (DAILY DOSE 60MG)
     Dates: start: 20200713, end: 20200714
  31. BUSULPHAN [Concomitant]
     Active Substance: BUSULFAN
     Dosage: IV, 210MG, ONCE (DAILY DOSE 210MG), PRESCRIBED FOR CONDITIONING
     Dates: start: 20200702, end: 20200703
  32. DOCUSATE [Concomitant]
     Active Substance: DOCUSATE
     Indication: CONSTIPATION
     Dosage: ORAL, 200MG, TWICE DAILY (DAILY DOSE 400MG)
     Dates: start: 20200702, end: 20200704
  33. TAZOCIN [Concomitant]
     Active Substance: PIPERACILLIN SODIUM\TAZOBACTAM SODIUM
     Indication: SEPSIS
     Dosage: IV, 4.5G, FOUR TIMES DAILY, (DAILY DOSE 18G)
     Dates: start: 20200704, end: 20200704
  34. MYCOPHENALATE MOFETIL [Concomitant]
     Active Substance: MYCOPHENOLATE MOFETIL
     Indication: PROPHYLAXIS
     Dosage: IV, 1G, THREE TIMES DAILY, (DAILY DOSE 3G)
     Dates: start: 20200709, end: 20200821
  35. METHOTREXATE. [Concomitant]
     Active Substance: METHOTREXATE
     Dosage: IV, 17.5MG, ONCE DAILY, (DAILY DOSE 17.5MG)
     Dates: start: 20200716, end: 20200716
  36. METHOTREXATE. [Concomitant]
     Active Substance: METHOTREXATE
     Dosage: IV, 17.5MG, ONCE DAILY, (DAILY DOSE 17.5MG)
     Dates: start: 20200721, end: 20200721
  37. ALEMTUZUMAB [Concomitant]
     Active Substance: ALEMTUZUMAB
     Dosage: IV, 30MG, ONCE DAILY (DAILY DOSE 30MG), PRESCRIBED FOR CONDITIONING
     Dates: start: 20200703, end: 20200708
  38. APREPITANT. [Concomitant]
     Active Substance: APREPITANT
     Indication: CHEMOTHERAPY SIDE EFFECT PROPHYLAXIS
     Dosage: ORAL, 125MG, ONCE DAILY (125MG DAILY DOSE)
     Dates: start: 20200710, end: 20200710
  39. NORADRENALINE [Concomitant]
     Active Substance: NOREPINEPHRINE
     Dosage: IV, 20MG, ONCE DAILY, (DAILY DOSE 20MG), PRESCRIBED CARDIOVASCULAR SUPPORT
     Dates: start: 20200705, end: 20200707
  40. METHOTREXATE. [Concomitant]
     Active Substance: METHOTREXATE
     Indication: PROPHYLAXIS
     Dosage: IV, 25MG, ONCE DAILY, (DAILY DOSE 25MG)
     Dates: start: 20200711, end: 20200711
  41. CALCIUM FOLINATE [Concomitant]
     Active Substance: LEUCOVORIN CALCIUM
     Indication: PROPHYLAXIS
     Dosage: IV, 30MG, TWICE DAILY, (DAILY DOSE 60MG)
     Dates: start: 20200712, end: 20200713
  42. FLUDARABINE [Suspect]
     Active Substance: FLUDARABINE PHOSPHATE
     Dosage: 65 MILLIGRAM DAILY; 50MG (25MG/ML) 2ML INTRAVENOUS INJECTION, PRESCRIBED FOR 3 DAYS
     Route: 042
     Dates: start: 20200702
  43. URSODEOXYCHOLIC ACID [Concomitant]
     Active Substance: URSODIOL
     Indication: PROPHYLAXIS
  44. CLONAZEPAM. [Concomitant]
     Active Substance: CLONAZEPAM
     Indication: SEIZURE PROPHYLAXIS
     Dosage: ORAL, 1MG, TWICE DAILY (DAILY DOSE 2MG)
     Dates: start: 20200702, end: 20200705
  45. PARACETAMOL [Concomitant]
     Active Substance: ACETAMINOPHEN
     Indication: PAIN
     Dosage: ORAL, 1MG, AS REQUIRED (DAILY DOSE 0-4G)
     Dates: start: 20200703, end: 20200826
  46. DIPEPTIVEN [Concomitant]
     Active Substance: ALANYL GLUTAMINE
     Indication: PROPHYLAXIS
     Dosage: IV, 20G, ONCE DAILY, (DAILY DOSE 20MG)
     Dates: start: 20200703, end: 20200802
  47. FUROSEMIDE. [Concomitant]
     Active Substance: FUROSEMIDE
     Indication: HYPERVOLAEMIA
     Dosage: IV, 20MG, ONCE DAILY, (DAILY DOSE 20MG)
     Dates: start: 20200703, end: 20200703
  48. METHOTREXATE. [Concomitant]
     Active Substance: METHOTREXATE
     Dosage: IV, 17.5MG, ONCE DAILY, (DAILY DOSE 17.5MG)
     Dates: start: 20200713, end: 20200713

REACTIONS (1)
  - Leukoencephalopathy [Not Recovered/Not Resolved]

NARRATIVE: CASE EVENT DATE: 20200806
